FAERS Safety Report 9972283 (Version 1)
Quarter: 2014Q1

REPORT INFORMATION
  Report Type: Report from Study
  Country: US (occurrence: US)
  Receive Date: 20140306
  Receipt Date: 20140306
  Transmission Date: 20141002
  Serious: No
  Sender: FDA-Public Use
  Company Number: US-ABBVIE-13P-163-1148706-00

PATIENT
  Age: 48 Year
  Sex: Female

DRUGS (6)
  1. HUMIRA [Suspect]
     Indication: PSORIASIS
     Route: 058
     Dates: start: 201308
  2. TARKA [Concomitant]
     Indication: HYPERTENSION
  3. TRIAM [Concomitant]
     Indication: HYPERTENSION
  4. PAXIL [Concomitant]
     Indication: ANXIETY
  5. TRAZODONE [Concomitant]
     Indication: INSOMNIA
  6. HYDROCODONE [Concomitant]
     Indication: INTERVERTEBRAL DISC DEGENERATION

REACTIONS (1)
  - Psoriasis [Not Recovered/Not Resolved]
